FAERS Safety Report 18056739 (Version 5)
Quarter: 2020Q3

REPORT INFORMATION
  Report Type: Spontaneous
  Country: IT (occurrence: IT)
  Receive Date: 20200722
  Receipt Date: 20200811
  Transmission Date: 20201103
  Serious: Yes (Other)
  Sender: FDA-Public Use
  Company Number: NVSC2020IT196010

PATIENT
  Age: 42 Year
  Sex: Female

DRUGS (8)
  1. FOSFOMYCIN [Suspect]
     Active Substance: FOSFOMYCIN
     Indication: CYSTITIS
  2. CIPROFLOXACIN. [Suspect]
     Active Substance: CIPROFLOXACIN
     Indication: CYSTITIS
  3. FOSFOMYCIN [Suspect]
     Active Substance: FOSFOMYCIN
     Indication: CYSTITIS ESCHERICHIA
     Dosage: 2 G, QD
     Route: 048
  4. FOSFOMYCIN [Suspect]
     Active Substance: FOSFOMYCIN
     Indication: CYSTITIS HAEMORRHAGIC
  5. FOSFOMYCIN [Suspect]
     Active Substance: FOSFOMYCIN
     Indication: URINARY TRACT INFECTION
  6. CIPROFLOXACIN. [Suspect]
     Active Substance: CIPROFLOXACIN
     Indication: CYSTITIS ESCHERICHIA
     Dosage: 500 MG, BID
     Route: 048
  7. CIPROFLOXACIN. [Suspect]
     Active Substance: CIPROFLOXACIN
     Indication: URINARY TRACT INFECTION
  8. CIPROFLOXACIN. [Suspect]
     Active Substance: CIPROFLOXACIN
     Indication: CYSTITIS HAEMORRHAGIC

REACTIONS (7)
  - Vulvovaginal candidiasis [Recovered/Resolved]
  - Diarrhoea [Recovered/Resolved]
  - Candida infection [Recovered/Resolved]
  - Therapy non-responder [Unknown]
  - Escherichia infection [Recovered/Resolved]
  - Cystitis escherichia [Recovering/Resolving]
  - Drug ineffective [Recovered/Resolved]
